FAERS Safety Report 4497137-8 (Version None)
Quarter: 2004Q4

REPORT INFORMATION
  Report Type: 
  Country: None (occurrence: None)
  Receive Date: 20041110
  Receipt Date: 20041022
  Transmission Date: 20050328
  Serious: Yes (Death, Other)
  Sender: FDA-Public Use
  Company Number: MX-ABBOTT-04P-107-0278529-00

PATIENT
  Age: 3 Year
  Weight: 15 kg

DRUGS (10)
  1. SEVORANE LIQUID FOR INHALATION [Suspect]
     Indication: ANAESTHESIA
     Route: 055
     Dates: start: 20030617, end: 20030617
  2. ATROPINE [Suspect]
     Indication: ANAESTHESIA
     Route: 030
     Dates: start: 20030617, end: 20030617
  3. ATROPINE [Suspect]
  4. FENTANYL [Suspect]
     Indication: ANAESTHESIA
     Dates: start: 20030617, end: 20030617
  5. HYDROCORTISONE [Suspect]
     Indication: ANAESTHESIA
     Dates: start: 20030617, end: 20030617
  6. KETOROLAC [Suspect]
     Indication: ANAESTHESIA
     Route: 042
     Dates: start: 20030617, end: 20030617
  7. KETOROLAC [Suspect]
     Dates: start: 20030617, end: 20030617
  8. NALBUPHINE [Suspect]
     Indication: ANAESTHESIA
     Dates: start: 20030617, end: 20030617
  9. MIDAZOLAM HCL [Concomitant]
     Indication: ANAESTHESIA
     Route: 030
     Dates: start: 20030617, end: 20030617
  10. MIDAZOLAM HCL [Concomitant]

REACTIONS (13)
  - AREFLEXIA [None]
  - BLOOD METHANOL INCREASED [None]
  - BLOOD PRESSURE DIASTOLIC DECREASED [None]
  - CEREBRAL HAEMORRHAGE [None]
  - CONVULSION [None]
  - CYANOSIS [None]
  - HYPERTHERMIA MALIGNANT [None]
  - MULTIPLE DRUG OVERDOSE [None]
  - MYDRIASIS [None]
  - OXYGEN SATURATION DECREASED [None]
  - PUPIL FIXED [None]
  - PYREXIA [None]
  - TACHYCARDIA [None]
